FAERS Safety Report 7138901-6 (Version None)
Quarter: 2010Q4

REPORT INFORMATION
  Report Type: 
  Country: None (occurrence: None)
  Receive Date: 20101206
  Receipt Date: 20100708
  Transmission Date: 20110411
  Serious: No
  Sender: FDA-Public Use
  Company Number: US-ABBOTT-10P-163-0635785-00

PATIENT
  Sex: Male
  Weight: 19.068 kg

DRUGS (1)
  1. OMNICEF [Suspect]
     Indication: SINUSITIS
     Dates: start: 20100324

REACTIONS (3)
  - ASTHMA [None]
  - COUGH [None]
  - VOMITING [None]
